FAERS Safety Report 4922540-9 (Version None)
Quarter: 2006Q1

REPORT INFORMATION
  Report Type: 
  Country: None (occurrence: None)
  Receive Date: 20060223
  Receipt Date: 20060223
  Transmission Date: 20060701
  Serious: Yes (Disabling)
  Sender: FDA-Public Use
  Company Number: None

PATIENT
  Sex: Female
  Weight: 58.0604 kg

DRUGS (1)
  1. OXYCODONE 20 MG [Suspect]
     Indication: COMPLEX REGIONAL PAIN SYNDROME
     Dosage: 40 MG 2X /DAY PO
     Route: 048
     Dates: start: 20050301

REACTIONS (2)
  - PHARMACEUTICAL PRODUCT COMPLAINT [None]
  - THERAPEUTIC RESPONSE UNEXPECTED WITH DRUG SUBSTITUTION [None]
